FAERS Safety Report 6576945-3 (Version None)
Quarter: 2010Q1

REPORT INFORMATION
  Report Type: 
  Country: None (occurrence: None)
  Receive Date: 20100210
  Receipt Date: 20100201
  Transmission Date: 20100710
  Serious: Yes (Hospitalization)
  Sender: FDA-Public Use
  Company Number: JP-AMGEN-US368805

PATIENT
  Sex: Female
  Weight: 74 kg

DRUGS (8)
  1. ENBREL [Suspect]
     Indication: RHEUMATOID ARTHRITIS
     Route: 058
     Dates: start: 20090908
  2. AMARYL [Concomitant]
     Indication: DIABETES MELLITUS
     Route: 048
     Dates: start: 20090824, end: 20090904
  3. LOXONIN [Concomitant]
     Indication: ANALGESIC THERAPY
     Route: 048
     Dates: start: 20090908, end: 20091005
  4. GASLON [Concomitant]
     Indication: PROPHYLAXIS
     Dosage: 4 MG EVERY 1 CYC
     Route: 048
     Dates: start: 20091006
  5. MAGNESIUM OXIDE [Concomitant]
     Indication: LAXATIVE SUPPORTIVE CARE
     Route: 048
     Dates: start: 20090904, end: 20091024
  6. GLUCOBAY [Concomitant]
     Indication: DIABETES MELLITUS
     Route: 048
     Dates: start: 20090906, end: 20091002
  7. METFORMIN HYDROCHLORIDE [Concomitant]
     Indication: DIABETES MELLITUS
     Route: 048
     Dates: start: 20090824, end: 20091109
  8. CELECOXIB [Concomitant]
     Indication: ANALGESIC THERAPY
     Route: 048
     Dates: start: 20091006

REACTIONS (4)
  - CONDITION AGGRAVATED [None]
  - INJECTION SITE ERYTHEMA [None]
  - INJECTION SITE PRURITUS [None]
  - RHEUMATOID ARTHRITIS [None]
